FAERS Safety Report 5317455-0 (Version None)
Quarter: 2007Q2

REPORT INFORMATION
  Report Type: 
  Country: None (occurrence: None)
  Receive Date: 20070507
  Receipt Date: 20070427
  Transmission Date: 20071010
  Serious: Yes (Other)
  Sender: FDA-Public Use
  Company Number: US-JNJFOC-20060904579

PATIENT
  Sex: Female
  Weight: 75.75 kg

DRUGS (6)
  1. REGRANEX [Suspect]
     Indication: SKIN ULCER
     Route: 061
     Dates: start: 20060829, end: 20060915
  2. HYDROCHLOROTHIAZIDE [Concomitant]
     Indication: HYPERTENSION
     Route: 065
  3. THYROID SUPPLEMENT [Concomitant]
     Indication: HYPOTHYROIDISM
     Route: 065
  4. RED RICE YEAST [Concomitant]
     Indication: BLOOD CHOLESTEROL
     Route: 065
  5. HYDROCODONE [Concomitant]
     Indication: PAIN
     Route: 065
  6. ALEVE [Concomitant]
     Indication: PAIN
     Route: 065

REACTIONS (4)
  - HYPERSENSITIVITY [None]
  - PHARYNGEAL OEDEMA [None]
  - PRURITUS [None]
  - RASH GENERALISED [None]
